FAERS Safety Report 18387161 (Version 1)
Quarter: 2020Q4

REPORT INFORMATION
  Report Type: Spontaneous
  Country: US (occurrence: US)
  Receive Date: 20201015
  Receipt Date: 20201015
  Transmission Date: 20210114
  Serious: Yes (Disabling, Other)
  Sender: FDA-Public Use
  Company Number: None

PATIENT
  Age: 29 Year
  Sex: Female
  Weight: 72 kg

DRUGS (6)
  1. GEODON [Suspect]
     Active Substance: ZIPRASIDONE HYDROCHLORIDE\ZIPRASIDONE MESYLATE
  2. COGENTIN [Concomitant]
     Active Substance: BENZTROPINE MESYLATE
  3. GABAPENTIN. [Suspect]
     Active Substance: GABAPENTIN
     Indication: ANXIETY
     Dosage: ?          QUANTITY:4 CAPSULE(S);?
     Route: 048
     Dates: start: 20180120, end: 20201015
  4. PROVIGIL [Concomitant]
     Active Substance: MODAFINIL
  5. ZYPREXA [Concomitant]
     Active Substance: OLANZAPINE
  6. TOPIRATE [Concomitant]

REACTIONS (5)
  - Product appearance confusion [None]
  - Decreased appetite [None]
  - Eye pain [None]
  - Nausea [None]
  - Wrong product administered [None]

NARRATIVE: CASE EVENT DATE: 20200418
